FAERS Safety Report 22399848 (Version 1)
Quarter: 2023Q2

REPORT INFORMATION
  Report Type: Spontaneous
  Country: US (occurrence: US)
  Receive Date: 20230602
  Receipt Date: 20230602
  Transmission Date: 20230722
  Serious: No
  Sender: FDA-Public Use
  Company Number: US-BAYER-2023A072585

PATIENT
  Sex: Female

DRUGS (1)
  1. ESTRADIOL [Suspect]
     Active Substance: ESTRADIOL
     Dosage: 0.1 MG
     Route: 062

REACTIONS (6)
  - Device adhesion issue [None]
  - Wrong technique in product usage process [None]
  - Hot flush [None]
  - Night sweats [None]
  - Application site erythema [None]
  - Application site rash [None]
